FAERS Safety Report 5143655-9 (Version None)
Quarter: 2006Q4

REPORT INFORMATION
  Report Type: 
  Country: None (occurrence: None)
  Receive Date: 20061103
  Receipt Date: 20060729
  Transmission Date: 20070319
  Serious: Yes (Hospitalization)
  Sender: FDA-Public Use
  Company Number: US-BOEHRINGER INGELHEIM PHARMACEUTICALS, INC.-2006-BP-08731BP

PATIENT
  Age: 57 Year
  Sex: Male

DRUGS (4)
  1. FLOMAX [Suspect]
     Indication: NOCTURIA
     Route: 048
     Dates: start: 20060718, end: 20060728
  2. TOPROL-XL [Concomitant]
     Indication: RENAL DISORDER
     Route: 048
  3. PLAVIX [Concomitant]
  4. ASPIRIN [Concomitant]

REACTIONS (2)
  - DYSPNOEA [None]
  - TACHYCARDIA [None]
